FAERS Safety Report 11516225 (Version 9)
Quarter: 2015Q4

REPORT INFORMATION
  Report Type: Report from Study
  Country: CA (occurrence: CA)
  Receive Date: 20150917
  Receipt Date: 20151208
  Transmission Date: 20160304
  Serious: Yes (Hospitalization, Other)
  Sender: FDA-Public Use
  Company Number: CA-ROCHE-1634036

PATIENT
  Age: 69 Year
  Sex: Female

DRUGS (17)
  1. ESBRIET [Suspect]
     Active Substance: PIRFENIDONE
     Dosage: ONE TABLET TRICE DAILY
     Route: 048
     Dates: start: 20151103
  2. ESBRIET [Suspect]
     Active Substance: PIRFENIDONE
     Dosage: UNKNOWN
     Route: 048
     Dates: start: 20151031
  3. ESBRIET [Suspect]
     Active Substance: PIRFENIDONE
     Dosage: TWO TABLETS TRICE DAILY
     Route: 048
     Dates: start: 20151116
  4. ESBRIET [Suspect]
     Active Substance: PIRFENIDONE
     Indication: IDIOPATHIC PULMONARY FIBROSIS
     Route: 048
     Dates: start: 20150825
  5. ESBRIET [Suspect]
     Active Substance: PIRFENIDONE
     Route: 048
     Dates: start: 20150926, end: 2015
  6. PREDNISONE. [Concomitant]
     Active Substance: PREDNISONE
  7. RANITIDINE [Concomitant]
     Active Substance: RANITIDINE\RANITIDINE HYDROCHLORIDE
  8. ZOCOR [Concomitant]
     Active Substance: SIMVASTATIN
  9. REMERON [Concomitant]
     Active Substance: MIRTAZAPINE
  10. ESBRIET [Suspect]
     Active Substance: PIRFENIDONE
     Route: 048
     Dates: start: 201511, end: 20151130
  11. DEXILANT [Concomitant]
     Active Substance: DEXLANSOPRAZOLE
  12. ESBRIET [Suspect]
     Active Substance: PIRFENIDONE
     Route: 048
     Dates: start: 20151108
  13. ESBRIET [Suspect]
     Active Substance: PIRFENIDONE
     Dosage: 1 TABLET TWICE DAILY
     Route: 048
     Dates: start: 20151101
  14. ESBRIET [Suspect]
     Active Substance: PIRFENIDONE
     Route: 048
     Dates: start: 201509
  15. ESBRIET [Suspect]
     Active Substance: PIRFENIDONE
     Route: 048
     Dates: start: 20151102
  16. ZOPICLONE [Concomitant]
     Active Substance: ZOPICLONE
  17. PROLIA [Concomitant]
     Active Substance: DENOSUMAB

REACTIONS (13)
  - Dyspnoea [Not Recovered/Not Resolved]
  - Fatigue [Recovered/Resolved]
  - Constipation [Not Recovered/Not Resolved]
  - Gait disturbance [Not Recovered/Not Resolved]
  - Drug intolerance [Unknown]
  - Anxiety [Recovering/Resolving]
  - Heart rate increased [Not Recovered/Not Resolved]
  - Vertigo [Not Recovered/Not Resolved]
  - Pneumothorax [Unknown]
  - Productive cough [Not Recovered/Not Resolved]
  - Pain [Not Recovered/Not Resolved]
  - Dizziness [Recovered/Resolved]
  - Hot flush [Unknown]

NARRATIVE: CASE EVENT DATE: 201509
